FAERS Safety Report 23942648 (Version 1)
Quarter: 2024Q2

REPORT INFORMATION
  Report Type: Spontaneous
  Country: US (occurrence: US)
  Receive Date: 20240605
  Receipt Date: 20240605
  Transmission Date: 20240717
  Serious: Yes (Other)
  Sender: FDA-Public Use
  Company Number: US-GLENMARK PHARMACEUTICALS-2024GMK091103

PATIENT

DRUGS (2)
  1. TRIAMCINOLONE ACETONIDE [Suspect]
     Active Substance: TRIAMCINOLONE ACETONIDE
     Indication: Product used for unknown indication
     Dosage: UNK (FORMULATION: FOAM)
     Route: 045
  2. PREDNISONE [Concomitant]
     Active Substance: PREDNISONE
     Indication: Product used for unknown indication
     Dosage: PREDNISONE TAPER (40 MG FOR 4 DAYS, 30 MG FOR 4 DAYS, 20 MG FOR 4 DAYS, 10 MG FOR 4 DAYS)
     Route: 065

REACTIONS (1)
  - Sinusitis fungal [Recovered/Resolved]
